FAERS Safety Report 7908368-6 (Version None)
Quarter: 2011Q4

REPORT INFORMATION
  Report Type: 
  Country: None (occurrence: None)
  Receive Date: 20111111
  Receipt Date: 20111101
  Transmission Date: 20120403
  Serious: Yes (Death, Hospitalization)
  Sender: FDA-Public Use
  Company Number: US-RANBAXY-2011US-50237

PATIENT
  Age: 49 Year
  Sex: Male

DRUGS (7)
  1. METOPROLOL [Suspect]
     Indication: PRODUCT USED FOR UNKNOWN INDICATION
     Dosage: UNK, UNK
     Route: 048
  2. DIPHENHYDRAMINE HCL [Suspect]
     Indication: PRODUCT USED FOR UNKNOWN INDICATION
     Dosage: UNK, UNK
     Route: 048
  3. INSULIN [Suspect]
     Indication: CARDIOGENIC SHOCK
     Dosage: 80-250 IU/H
     Route: 042
  4. INSULIN [Suspect]
     Dosage: 80 IU, BOLUS
     Route: 042
  5. BUPROPION HCL [Suspect]
     Indication: PRODUCT USED FOR UNKNOWN INDICATION
     Dosage: UNK, UNK
     Route: 048
  6. LISINOPRIL [Suspect]
     Indication: PRODUCT USED FOR UNKNOWN INDICATION
     Dosage: UNK, UNK
     Route: 048
  7. QUETIAPINE [Suspect]
     Indication: PRODUCT USED FOR UNKNOWN INDICATION
     Dosage: UNK, UNK
     Route: 048

REACTIONS (4)
  - CARDIOGENIC SHOCK [None]
  - HYPOKALAEMIA [None]
  - MULTIPLE DRUG OVERDOSE [None]
  - CARDIAC ARREST [None]
